FAERS Safety Report 15150193 (Version 1)
Quarter: 2018Q3

REPORT INFORMATION
  Report Type: Spontaneous
  Country: TR (occurrence: TR)
  Receive Date: 20180716
  Receipt Date: 20180716
  Transmission Date: 20181010
  Serious: Yes (Death)
  Sender: FDA-Public Use
  Company Number: TR-US WORLDMEDS, LLC-STA_00016797

PATIENT
  Age: 82 Year
  Sex: Male

DRUGS (4)
  1. EXELON [Concomitant]
     Active Substance: RIVASTIGMINE TARTRATE
     Indication: DEMENTIA ALZHEIMER^S TYPE
     Route: 062
     Dates: start: 20120620
  2. APOMORPHINE HYDROCHLORIDE [Suspect]
     Active Substance: APOMORPHINE HYDROCHLORIDE
     Indication: PARKINSON^S DISEASE
     Route: 058
     Dates: start: 20120620, end: 20120923
  3. METPAMID [Concomitant]
     Active Substance: METOCLOPRAMIDE
     Indication: NAUSEA
     Route: 048
     Dates: start: 20120620
  4. MADOPAR 125 MG [Concomitant]
     Indication: PARKINSON^S DISEASE
     Route: 048
     Dates: start: 20020101

REACTIONS (2)
  - Sepsis [Fatal]
  - Infection [Fatal]

NARRATIVE: CASE EVENT DATE: 20120916
